FAERS Safety Report 17325838 (Version 1)
Quarter: 2020Q1

REPORT INFORMATION
  Report Type: Spontaneous
  Country: FR (occurrence: FR)
  Receive Date: 20200127
  Receipt Date: 20200127
  Transmission Date: 20200409
  Serious: Yes (Hospitalization)
  Sender: FDA-Public Use
  Company Number: FR-MYLANLABS-2020M1008356

PATIENT
  Age: 89 Year
  Sex: Male
  Weight: 88 kg

DRUGS (3)
  1. TRAMADOL. [Suspect]
     Active Substance: TRAMADOL
     Indication: BONE PAIN
     Dosage: UNK (INCONNUE)
     Route: 048
     Dates: start: 20191015, end: 20191027
  2. LAROXYL [Suspect]
     Active Substance: AMITRIPTYLINE HYDROCHLORIDE
     Indication: DEPRESSION
     Dosage: 15 GTT DROPS, QD
     Route: 048
     Dates: end: 20191031
  3. SERESTA [Suspect]
     Active Substance: OXAZEPAM
     Indication: SLEEP DISORDER
     Dosage: 5 MILLIGRAM, QD
     Route: 048
     Dates: end: 20191029

REACTIONS (2)
  - Hallucination, visual [Recovered/Resolved]
  - Disorientation [Recovered/Resolved]

NARRATIVE: CASE EVENT DATE: 201910
